FAERS Safety Report 6885675-X (Version None)
Quarter: 2010Q3

REPORT INFORMATION
  Report Type: 
  Country: None (occurrence: None)
  Receive Date: 20100729
  Receipt Date: 20080514
  Transmission Date: 20110219
  Serious: No
  Sender: FDA-Public Use
  Company Number: US-PFIZER INC-2008042163

PATIENT
  Sex: Male
  Weight: 109.09 kg

DRUGS (3)
  1. CELEBREX [Suspect]
     Indication: ARTHRITIS
     Route: 048
     Dates: start: 20080505
  2. AVALIDE [Concomitant]
  3. CADUET [Concomitant]

REACTIONS (1)
  - RASH GENERALISED [None]
